FAERS Safety Report 5945757-3 (Version None)
Quarter: 2008Q4

REPORT INFORMATION
  Report Type: 
  Country: None (occurrence: None)
  Receive Date: 20081106
  Receipt Date: 20081029
  Transmission Date: 20090506
  Serious: No
  Sender: FDA-Public Use
  Company Number: LIT-08-0020-W

PATIENT
  Age: 61 Year
  Sex: Male

DRUGS (6)
  1. MIRTAZAPINE [Suspect]
     Indication: DEPRESSION
     Dosage: 15 MG DAILY
  2. METFORMIN HCL [Concomitant]
  3. GLICLAZIDE [Concomitant]
  4. IRBESARTAN [Concomitant]
  5. HYDROCHLOROTHIAZIDE [Concomitant]
  6. ... [Concomitant]

REACTIONS (2)
  - HYPONATRAEMIA [None]
  - SOMNOLENCE [None]
